FAERS Safety Report 6758872-1 (Version None)
Quarter: 2010Q2

REPORT INFORMATION
  Report Type: 
  Country: None (occurrence: None)
  Receive Date: 20100607
  Receipt Date: 20100526
  Transmission Date: 20101027
  Serious: Yes (Hospitalization, Other)
  Sender: FDA-Public Use
  Company Number: PHHY2010BR34647

PATIENT
  Sex: Female

DRUGS (1)
  1. VOLTAREN [Suspect]
     Dosage: 4 INJECTIONS OF 75 MG FOR 4 DAYS CONSECUTIVELY

REACTIONS (1)
  - INJECTION SITE ABSCESS [None]
